FAERS Safety Report 20085627 (Version 2)
Quarter: 2021Q4

REPORT INFORMATION
  Report Type: Spontaneous
  Country: DE (occurrence: DE)
  Receive Date: 20211118
  Receipt Date: 20211123
  Transmission Date: 20220303
  Serious: No
  Sender: FDA-Public Use
  Company Number: DE-PFM-2021-11226

PATIENT
  Age: 44 Year
  Sex: Male

DRUGS (1)
  1. BINIMETINIB [Suspect]
     Active Substance: BINIMETINIB
     Indication: Astrocytoma
     Dosage: 45 MG, 2X/DAY (THREE CYCLES)

REACTIONS (1)
  - Off label use [Unknown]
